FAERS Safety Report 20286442 (Version 1)
Quarter: 2022Q1

REPORT INFORMATION
  Report Type: Spontaneous
  Country: US (occurrence: US)
  Receive Date: 20220103
  Receipt Date: 20220103
  Transmission Date: 20220423
  Serious: No
  Sender: FDA-Public Use
  Company Number: US-JNJFOC-20211232253

PATIENT
  Age: 88 Year
  Sex: Male
  Weight: 104.33 kg

DRUGS (6)
  1. XARELTO [Suspect]
     Active Substance: RIVAROXABAN
     Indication: Product used for unknown indication
     Route: 048
     Dates: start: 20180925
  2. XARELTO [Suspect]
     Active Substance: RIVAROXABAN
     Route: 048
     Dates: start: 20210830
  3. ENTRESTO [Suspect]
     Active Substance: SACUBITRIL\VALSARTAN
     Indication: Atrial fibrillation
     Dosage: 24/26 MG ONE TABLET TWICE DAILY.
     Route: 048
     Dates: start: 20180925
  4. VYNDAMAX [Suspect]
     Active Substance: TAFAMIDIS
     Indication: Cardiac amyloidosis
     Dosage: 61 MG. ONE CAPSULE DAILY BY MOUTH
     Route: 048
  5. TRAMADOL [Concomitant]
     Active Substance: TRAMADOL
     Indication: Pain
     Dosage: HE CAN TAKE 1 EVERY 8 HOURS, BUT ONLY TAKES 1 EVERY 2-3 DAYS AS NEEDED.
  6. ASPIRIN [Concomitant]
     Active Substance: ASPIRIN

REACTIONS (4)
  - Blood blister [Unknown]
  - Rash pruritic [Unknown]
  - Lumbar spinal stenosis [Unknown]
  - Spinal decompression [Unknown]
